FAERS Safety Report 7952625-4 (Version None)
Quarter: 2011Q4

REPORT INFORMATION
  Report Type: 
  Country: None (occurrence: None)
  Receive Date: 20111201
  Receipt Date: 20111130
  Transmission Date: 20120403
  Serious: Yes (Other)
  Sender: FDA-Public Use
  Company Number: FR-JNJFOC-20111111298

PATIENT
  Sex: Female

DRUGS (2)
  1. PSEUDOEPHEDRINE HCL [Suspect]
     Route: 048
  2. PSEUDOEPHEDRINE HCL [Suspect]
     Indication: NASOPHARYNGITIS
     Route: 048
     Dates: start: 20110501

REACTIONS (13)
  - HYPERHIDROSIS [None]
  - ABDOMINAL PAIN UPPER [None]
  - FEELING OF BODY TEMPERATURE CHANGE [None]
  - CONSTIPATION [None]
  - THIRST [None]
  - HEADACHE [None]
  - WEIGHT DECREASED [None]
  - TACHYCARDIA [None]
  - FATIGUE [None]
  - CHILLS [None]
  - INTENTIONAL DRUG MISUSE [None]
  - DRUG DEPENDENCE [None]
  - TREMOR [None]
